FAERS Safety Report 6609167-8 (Version None)
Quarter: 2010Q1

REPORT INFORMATION
  Report Type: 
  Country: None (occurrence: None)
  Receive Date: 20100224
  Receipt Date: 20090427
  Transmission Date: 20100710
  Serious: Yes (Hospitalization)
  Sender: FDA-Public Use
  Company Number: 2009-2372

PATIENT
  Age: 67 Year
  Sex: Male

DRUGS (2)
  1. APOKYN [Suspect]
     Indication: PARKINSON'S DISEASE
     Dosage: SEE IMAGE
     Route: 058
     Dates: start: 20081001, end: 20090101
  2. APOKYN [Suspect]
     Indication: PARKINSON'S DISEASE
     Dosage: SEE IMAGE
     Route: 058
     Dates: start: 20090101

REACTIONS (2)
  - CONTUSION [None]
  - FALL [None]
